FAERS Safety Report 5028885-9 (Version None)
Quarter: 2006Q2

REPORT INFORMATION
  Report Type: 
  Country: None (occurrence: None)
  Receive Date: 20060501
  Receipt Date: 20060217
  Transmission Date: 20061013
  Serious: No
  Sender: FDA-Public Use
  Company Number: 200611678US

PATIENT
  Age: 44 Year
  Sex: Female
  Weight: 61.36 kg

DRUGS (3)
  1. KETEK [Suspect]
     Indication: BRONCHITIS
     Dosage: 800 MG QD
     Dates: start: 20060102, end: 20060106
  2. ETHINYL ESTRADIOL TAB [Concomitant]
  3. LEVONORGESTREL (LO/OVRAL) [Concomitant]

REACTIONS (1)
  - VISION BLURRED [None]
